FAERS Safety Report 25660199 (Version 1)
Quarter: 2025Q3

REPORT INFORMATION
  Report Type: Spontaneous
  Country: US (occurrence: None)
  Receive Date: 20250807
  Receipt Date: 20250807
  Transmission Date: 20251021
  Serious: No
  Sender: FDA-CTU
  Company Number: None

PATIENT
  Age: 45 Year
  Sex: Female
  Weight: 50.85 kg

DRUGS (1)
  1. TERCONAZOLE [Suspect]
     Active Substance: TERCONAZOLE
     Dates: start: 20250721, end: 20250725

REACTIONS (5)
  - Thermal burn [None]
  - Dermatitis [None]
  - Swelling [None]
  - Dry skin [None]
  - No reaction on previous exposure to drug [None]

NARRATIVE: CASE EVENT DATE: 20250724
